FAERS Safety Report 20068381 (Version 1)
Quarter: 2021Q4

REPORT INFORMATION
  Report Type: Spontaneous
  Country: RS (occurrence: RS)
  Receive Date: 20211115
  Receipt Date: 20211115
  Transmission Date: 20220303
  Serious: Yes (Hospitalization)
  Sender: FDA-Public Use
  Company Number: RS-SA-2021SA363992

PATIENT
  Age: 48 Year
  Sex: Female

DRUGS (1)
  1. ALEMTUZUMAB [Suspect]
     Active Substance: ALEMTUZUMAB
     Indication: Relapsing-remitting multiple sclerosis
     Dosage: UNK
     Dates: start: 201907

REACTIONS (1)
  - Fibrin D dimer increased [Unknown]

NARRATIVE: CASE EVENT DATE: 20190701
